FAERS Safety Report 9352899 (Version 1)
Quarter: 2013Q2

REPORT INFORMATION
  Report Type: Spontaneous
  Country: FR (occurrence: FR)
  Receive Date: 20130618
  Receipt Date: 20130618
  Transmission Date: 20140414
  Serious: Yes (Hospitalization)
  Sender: FDA-Public Use
  Company Number: FR-JNJFOC-20130601231

PATIENT
  Age: 61 Year
  Sex: Female

DRUGS (14)
  1. DUROGESIC [Suspect]
     Indication: PAIN
     Dosage: 4.2MG/10.5CM2
     Route: 062
     Dates: start: 20130415
  2. TAZOCILLINE [Suspect]
     Indication: PYREXIA
     Dosage: 4G/500MG
     Route: 042
     Dates: start: 20130416
  3. TAZOCILLINE [Suspect]
     Indication: ESCHERICHIA SEPSIS
     Dosage: 4G/500MG
     Route: 042
     Dates: start: 20130416
  4. CIPLOX [Suspect]
     Indication: PNEUMONIA KLEBSIELLA
     Route: 048
     Dates: start: 20130418
  5. CIPLOX [Suspect]
     Indication: PSEUDOMONAS INFECTION
     Route: 048
     Dates: start: 20130418
  6. LEXOMIL [Suspect]
     Indication: ANXIETY
     Route: 048
     Dates: start: 20130415
  7. INEXIUM [Suspect]
     Indication: PRODUCT USED FOR UNKNOWN INDICATION
     Route: 065
     Dates: start: 20130415
  8. VENLAFAXINE [Suspect]
     Indication: DEPRESSION
     Route: 048
     Dates: start: 20130422
  9. VOGALENE [Suspect]
     Indication: PRODUCT USED FOR UNKNOWN INDICATION
     Route: 048
     Dates: start: 20130417
  10. DOLIPRANE [Suspect]
     Indication: PRODUCT USED FOR UNKNOWN INDICATION
     Route: 048
     Dates: start: 20130417
  11. SPASFON [Suspect]
     Indication: PRODUCT USED FOR UNKNOWN INDICATION
     Route: 048
     Dates: start: 20130417
  12. FUNGIZONE [Suspect]
     Indication: PRODUCT USED FOR UNKNOWN INDICATION
     Route: 065
     Dates: start: 20130417
  13. ACTISKENAN [Suspect]
     Indication: PRODUCT USED FOR UNKNOWN INDICATION
     Route: 048
     Dates: start: 20130417
  14. INNOHEP [Suspect]
     Indication: PRODUCT USED FOR UNKNOWN INDICATION
     Dosage: 10000 UI
     Route: 058
     Dates: start: 20130418

REACTIONS (1)
  - Agranulocytosis [Not Recovered/Not Resolved]
